FAERS Safety Report 5249550-9 (Version None)
Quarter: 2007Q1

REPORT INFORMATION
  Report Type: 
  Country: None (occurrence: None)
  Receive Date: 20070228
  Receipt Date: 20060213
  Transmission Date: 20070707
  Serious: No
  Sender: FDA-Public Use
  Company Number: US-GLAXOSMITHKLINE-A0593493A

PATIENT
  Sex: Male

DRUGS (4)
  1. IMITREX [Suspect]
     Indication: MIGRAINE
     Dosage: 20MG THREE TIMES PER DAY
     Route: 042
  2. IMITREX [Suspect]
     Route: 048
  3. IMITREX [Suspect]
     Dosage: 20MG AS REQUIRED
     Route: 045
  4. REGLAN [Concomitant]

REACTIONS (4)
  - DRUG INEFFECTIVE [None]
  - GASTROINTESTINAL DISORDER [None]
  - INCORRECT ROUTE OF DRUG ADMINISTRATION [None]
  - OVERDOSE [None]
